FAERS Safety Report 12570560 (Version 5)
Quarter: 2020Q3

REPORT INFORMATION
  Report Type: Report from Study
  Country: DE (occurrence: DE)
  Receive Date: 20160719
  Receipt Date: 20170629
  Transmission Date: 20201105
  Serious: Yes (Hospitalization)
  Sender: FDA-Public Use
  Company Number: DE-PFIZER INC-2016344951

PATIENT
  Age: 53 Year
  Sex: Male
  Weight: 104 kg

DRUGS (12)
  1. MEDI4736 [Suspect]
     Active Substance: DURVALUMAB
     Dosage: 2080 MG, ONCE EVERY 4 WEEKS
     Route: 042
     Dates: start: 20160209, end: 20160209
  2. MEDI4736 [Suspect]
     Active Substance: DURVALUMAB
     Dosage: 2220 MG, ONCE EVERY 4 WEEKS
     Route: 042
     Dates: start: 20160531, end: 20160531
  3. SPIRONOLACTON [Concomitant]
     Active Substance: SPIRONOLACTONE
     Indication: HYPERTENSION
     Dosage: 25 MG, 1X/DAY
     Route: 048
     Dates: start: 20151203, end: 20160629
  4. FRAGMIN P FORTE [Concomitant]
     Active Substance: DALTEPARIN SODIUM
     Indication: ANTICOAGULANT THERAPY
     Dosage: 18000 IU DAILY
     Route: 058
     Dates: start: 20160531, end: 20161020
  5. MEDI4736 [Suspect]
     Active Substance: DURVALUMAB
     Dosage: 2080 MG, ONCE EVERY 4 WEEKS
     Route: 042
     Dates: start: 20160503, end: 20160503
  6. GEMCITABINE HYDROCHLORIDE. [Suspect]
     Active Substance: GEMCITABINE HYDROCHLORIDE
     Indication: DISEASE PROGRESSION
     Dosage: NUMBER OF CYCLES 4, SECOND LINE
     Route: 042
     Dates: start: 20160620, end: 20160905
  7. TREMELIMUMAB. [Suspect]
     Active Substance: TREMELIMUMAB
     Indication: NON-SMALL CELL LUNG CANCER
     Dosage: 104 MG, ONCE EVERY 4 WEEKS
     Route: 042
     Dates: start: 20151215, end: 20151215
  8. METOPROLOL. [Concomitant]
     Active Substance: METOPROLOL
     Indication: ATRIAL FLUTTER
     Dosage: 95 MG BID
     Route: 048
     Dates: start: 20160202
  9. MEDI4736 [Suspect]
     Active Substance: DURVALUMAB
     Indication: NON-SMALL CELL LUNG CANCER
     Dosage: 2080 MG, ONCE EVERY 4 WEEKS
     Route: 042
     Dates: start: 20151215, end: 20151215
  10. CISPLATIN. [Suspect]
     Active Substance: CISPLATIN
     Indication: DISEASE PROGRESSION
     Dosage: UNK
     Route: 042
     Dates: start: 20160620, end: 20160809
  11. TREMELIMUMAB. [Suspect]
     Active Substance: TREMELIMUMAB
     Dosage: 104 MG, ONCE EVERY 4 WEEKS
     Route: 042
     Dates: start: 20160209, end: 20160209
  12. LEVOFLOXACIN. [Concomitant]
     Active Substance: LEVOFLOXACIN
     Indication: BRONCHITIS
     Dosage: 500 MG, 1X/DAY
     Route: 048
     Dates: start: 20160613, end: 20160629

REACTIONS (1)
  - Bronchitis [Recovered/Resolved]

NARRATIVE: CASE EVENT DATE: 20160701
